FAERS Safety Report 10685161 (Version 6)
Quarter: 2015Q2

REPORT INFORMATION
  Report Type: Spontaneous
  Country: US (occurrence: None)
  Receive Date: 20141229
  Receipt Date: 20150423
  Transmission Date: 20150821
  Serious: Yes (Death, Life-Threatening, Hospitalization, Other)
  Sender: FDA-Public Use
  Company Number: ADR-2014-02405

PATIENT
  Age: 69 Year
  Sex: Female

DRUGS (2)
  1. MORPHINE INTRATHECAL [Suspect]
     Active Substance: MORPHINE
     Indication: PAIN
  2. COMPOUNDED BACLOFEN INTRATHECAL [Suspect]
     Active Substance: BACLOFEN
     Indication: PAIN

REACTIONS (14)
  - Pneumonia [None]
  - Device occlusion [None]
  - Pain [None]
  - Medical device complication [None]
  - Sepsis [None]
  - Apnoea [None]
  - Device damage [None]
  - Staphylococcal infection [None]
  - Unresponsive to stimuli [None]
  - Acute kidney injury [None]
  - Device related infection [None]
  - Fall [None]
  - Joint abscess [None]
  - Device breakage [None]
